FAERS Safety Report 4563637-5 (Version None)
Quarter: 2005Q1

REPORT INFORMATION
  Report Type: 
  Country: None (occurrence: None)
  Receive Date: 20050121
  Receipt Date: 20050111
  Transmission Date: 20050727
  Serious: Yes (Other)
  Sender: FDA-Public Use
  Company Number: 2005013540

PATIENT
  Age: 28 Year
  Sex: Female

DRUGS (5)
  1. PREDNISOLONE [Suspect]
     Indication: ROSACEA
     Dosage: 35 MG
  2. ERYTHROMYCIN [Concomitant]
  3. MIFEPRISTONE (MIFEPRISTONE) [Concomitant]
  4. DINOPROSTONE (DINOPROSTONE) [Concomitant]
  5. INSULIN [Concomitant]

REACTIONS (6)
  - BODY MASS INDEX INCREASED [None]
  - DISEASE RECURRENCE [None]
  - DRUG EXPOSURE DURING PREGNANCY [None]
  - GESTATIONAL DIABETES [None]
  - INFLAMMATION [None]
  - ROSACEA [None]
